FAERS Safety Report 10293047 (Version 1)
Quarter: 2014Q3

REPORT INFORMATION
  Report Type: Spontaneous
  Country: US (occurrence: US)
  Receive Date: 20140710
  Receipt Date: 20140710
  Transmission Date: 20150326
  Serious: Yes (Other)
  Sender: FDA-Public Use
  Company Number: US-IAC JAPAN XML-USA-2013-0108524

PATIENT
  Age: 86 Year
  Sex: Female

DRUGS (3)
  1. BUTRANS [Suspect]
     Active Substance: BUPRENORPHINE
     Dosage: 10 MCG/HR, WEEKLY
     Route: 062
  2. BUTRANS [Suspect]
     Active Substance: BUPRENORPHINE
     Indication: SCIATICA
     Dosage: 5 MCG/HR, WEEKLY
     Route: 062
  3. BUTRANS [Suspect]
     Active Substance: BUPRENORPHINE
     Dosage: 2,10 MCG/HR, WEEKLY
     Route: 062
     Dates: start: 20131106

REACTIONS (7)
  - Extra dose administered [Unknown]
  - Nausea [Unknown]
  - Drug ineffective [Unknown]
  - Insomnia [Unknown]
  - Hallucination [Unknown]
  - Dyspnoea [Unknown]
  - Dry mouth [Unknown]

NARRATIVE: CASE EVENT DATE: 2013
